FAERS Safety Report 11326896 (Version 1)
Quarter: 2015Q3

REPORT INFORMATION
  Report Type: Report from Study
  Country: BR (occurrence: BR)
  Receive Date: 20150731
  Receipt Date: 20150731
  Transmission Date: 20151125
  Serious: Yes (Death, Hospitalization)
  Sender: FDA-Public Use
  Company Number: BR-BAYER-2015-362273

PATIENT
  Age: 67 Year
  Sex: Male
  Weight: 59.86 kg

DRUGS (6)
  1. OMEPRAZOLE. [Concomitant]
     Active Substance: OMEPRAZOLE
     Indication: PROPHYLAXIS
     Dosage: 1 DF, QD
     Route: 048
  2. TYLEX [PARACETAMOL] [Concomitant]
     Indication: PAIN
     Dosage: 1 DF, PRN
     Route: 048
  3. NUTRAMIN [Concomitant]
     Indication: VITAMIN SUPPLEMENTATION
     Dosage: UNK
     Route: 048
  4. NEXAVAR [Suspect]
     Active Substance: SORAFENIB
     Indication: HEPATIC NEOPLASM
     Dosage: 400 MG, BID (2 TABLETS AT 8 AM AND 2 TABLETS AT 8 PM)
     Route: 048
     Dates: start: 201505, end: 20150715
  5. AMITRIL [Concomitant]
     Active Substance: AMITRIPTYLINE HYDROCHLORIDE
     Indication: RELAXATION THERAPY
     Dosage: 1 DF, QD
     Route: 048
     Dates: start: 201505
  6. NEXAVAR [Suspect]
     Active Substance: SORAFENIB
     Indication: HEPATIC NEOPLASM
     Dosage: UNK

REACTIONS (4)
  - Asthenia [None]
  - Weight decreased [Not Recovered/Not Resolved]
  - Hepatic cancer [Fatal]
  - Decreased appetite [Not Recovered/Not Resolved]

NARRATIVE: CASE EVENT DATE: 20150612
